FAERS Safety Report 5565089-5 (Version None)
Quarter: 2007Q4

REPORT INFORMATION
  Report Type: 
  Country: None (occurrence: None)
  Receive Date: 20071212
  Receipt Date: 20071204
  Transmission Date: 20080405
  Serious: Yes (Life-Threatening, Other)
  Sender: FDA-Public Use
  Company Number: 163-21880-07110278

PATIENT
  Age: 76 Year
  Sex: Male

DRUGS (1)
  1. REVLIMID [Suspect]
     Indication: AMYLOIDOSIS
     Dosage: 10 MG,DAILY 21OUT 28 DAYS,ORAL
     Route: 048
     Dates: start: 20070905, end: 20071002

REACTIONS (5)
  - DIALYSIS [None]
  - DISEASE PROGRESSION [None]
  - FATIGUE [None]
  - RENAL AMYLOIDOSIS [None]
  - RENAL FAILURE ACUTE [None]
